FAERS Safety Report 10389644 (Version 1)
Quarter: 2014Q3

REPORT INFORMATION
  Report Type: Spontaneous
  Country: US (occurrence: None)
  Receive Date: 20140813
  Receipt Date: 20140813
  Transmission Date: 20150326
  Serious: Yes (Other)
  Sender: FDA-Public Use
  Company Number: SYM-2014-23744

PATIENT
  Age: 16 Year
  Sex: Female

DRUGS (5)
  1. TRETINOIN (TRETINOIN) [Concomitant]
  2. CERAVE AM FACIAL MOISTURIZING [Suspect]
     Active Substance: HOMOSALATE\OCTINOXATE\OCTOCRYLENE\ZINC OXIDE
     Indication: ACNE
     Dosage: EVERY MORNING AND EVENING TOPICAL
     Dates: start: 201406, end: 20140727
  3. CERAVE HYDRATING CLEANSER [Suspect]
     Active Substance: SALICYLIC ACID
     Indication: ACNE
     Dosage: EVERY MORNING AND EVENING, TOPICAL
     Dates: start: 201406, end: 20140727
  4. CERAVE SUNSCREEN BROAD SPECTRUM SPF 30 FACE [Suspect]
     Active Substance: HOMOSALATE\MERADIMATE\OCTINOXATE\TITANIUM DIOXIDE\ZINC OXIDE
     Indication: ACNE
     Dosage: WHEN OUT IN THE SUN, TOPICAL
     Dates: start: 201406, end: 20140727
  5. CEFALEXIN (CEFALEXIN) [Suspect]
     Active Substance: CEPHALEXIN
     Indication: ACNE

REACTIONS (5)
  - Urticaria [None]
  - Hypoaesthesia [None]
  - Cough [None]
  - Lip swelling [None]
  - Chest discomfort [None]
